FAERS Safety Report 9868564 (Version 2)
Quarter: 2014Q1

REPORT INFORMATION
  Report Type: Spontaneous
  Country: US (occurrence: US)
  Receive Date: 20140204
  Receipt Date: 20140212
  Transmission Date: 20141002
  Serious: No
  Sender: FDA-Public Use
  Company Number: US-PFIZER INC-2014029410

PATIENT
  Age: 16 Month
  Sex: Female

DRUGS (1)
  1. CHILDREN^S ADVIL [Suspect]
     Indication: PYREXIA
     Dosage: UNK
     Dates: end: 201401

REACTIONS (1)
  - Rash [Recovered/Resolved]
